FAERS Safety Report 6851149-5 (Version None)
Quarter: 2010Q3

REPORT INFORMATION
  Report Type: 
  Country: None (occurrence: None)
  Receive Date: 20100716
  Receipt Date: 20080716
  Transmission Date: 20110219
  Serious: Yes (Other)
  Sender: FDA-Public Use
  Company Number: US-PFIZER INC-2007090923

PATIENT
  Sex: Female
  Weight: 55 kg

DRUGS (3)
  1. CHANTIX [Suspect]
     Indication: SMOKING CESSATION THERAPY
     Route: 048
     Dates: start: 20070901, end: 20071001
  2. THYROID TAB [Concomitant]
     Indication: THYROID DISORDER
     Route: 048
  3. IMIPRAMINE [Concomitant]
     Route: 048

REACTIONS (10)
  - ANXIETY [None]
  - CONSTIPATION [None]
  - FATIGUE [None]
  - FEELING ABNORMAL [None]
  - HYPERSOMNIA [None]
  - INTESTINAL FUNCTIONAL DISORDER [None]
  - MOBILITY DECREASED [None]
  - NAUSEA [None]
  - VOMITING [None]
  - WEIGHT INCREASED [None]
